FAERS Safety Report 10236140 (Version 1)
Quarter: 2014Q1

REPORT INFORMATION
  Report Type: Spontaneous
  Country: US (occurrence: None)
  Receive Date: 20140306
  Receipt Date: 20140306
  Transmission Date: 20141002
  Serious: Yes (Other)
  Sender: FDA-Public Use
  Company Number: 163-21880-13103367

PATIENT
  Age: 70 Year
  Sex: Male

DRUGS (9)
  1. REVLIMID (LENALIDOMIDE) (10 MILLIGRAM, CAPSULES) [Suspect]
     Indication: MYELODYSPLASTIC SYNDROME
     Dosage: 10 MG, 1 IN 1 D, PO  12/01/2011 - UNKNOWN THERAPY DATES
     Route: 048
     Dates: start: 20111201
  2. HYDROCHLOROTHIAZIDE (HYDROCHLOROTHIAZIDE)  (UNKNOWN) [Concomitant]
  3. COREG (CARVEDILOL) [Concomitant]
  4. PERCOCET (OXYCOCET) [Concomitant]
  5. EXJADE (DEFERASIROX) DISPERSIBLE TABLET [Concomitant]
  6. LASIX (FUROSEMIDE) [Concomitant]
  7. NORVASC (AMLODIPINE BESILATE) [Concomitant]
  8. POTASSIUM CHLORIDE (POTASSIUM CHLORIDE) [Concomitant]
  9. ISOSORBIDE MONONITRATE (ISOSORBIDE MONONITRATE) [Concomitant]

REACTIONS (1)
  - Full blood count decreased [None]
